FAERS Safety Report 4274265-3 (Version None)
Quarter: 2004Q1

REPORT INFORMATION
  Report Type: 
  Country: None (occurrence: None)
  Receive Date: 20040115
  Receipt Date: 20040105
  Transmission Date: 20041129
  Serious: Yes (Death, Hospitalization)
  Sender: FDA-Public Use
  Company Number: 200314804FR

PATIENT
  Age: 71 Year
  Sex: Male

DRUGS (9)
  1. FUROSEMIDE [Suspect]
     Dosage: 40 MG/DAY PO
     Dates: end: 20031121
  2. TERLIPRESSIN ACETATE (GLYPRESSINE) [Suspect]
     Dosage: IV
     Route: 042
     Dates: start: 20031120, end: 20031125
  3. PROPANOLOL HYDROCHLORIDE (AVLOCARDYL LP 160 MG) CAPSULES [Suspect]
     Dosage: 160 MG/DAY PO
  4. ALDACTONE [Suspect]
     Dosage: 75 MG BID PO
     Dates: end: 20031121
  5. ALBUMIN (HUMAN) [Suspect]
     Dosage: INTRAVENOUS
     Route: 042
     Dates: start: 20031119, end: 20031121
  6. THIAMINE,  PYRIDOXINE (VITAMIN B1 AND B6) [Concomitant]
  7. VITAMIN B-12 [Concomitant]
  8. ALUMINUM PHOSPHATE GEL (PHOSPHALUGEL) [Concomitant]
  9. DUPHALAC [Concomitant]

REACTIONS (4)
  - CARDIO-RESPIRATORY ARREST [None]
  - SCROTAL ULCER [None]
  - SKIN NECROSIS [None]
  - THROMBOCYTOPENIC PURPURA [None]
